FAERS Safety Report 4305389-X (Version None)
Quarter: 2004Q1

REPORT INFORMATION
  Report Type: 
  Country: None (occurrence: None)
  Receive Date: 20040226
  Receipt Date: 20030929
  Transmission Date: 20041129
  Serious: Yes (Other)
  Sender: FDA-Public Use
  Company Number: US-BRISTOL-MYERS SQUIBB COMPANY-12396321

PATIENT
  Age: 54 Year
  Sex: Female

DRUGS (2)
  1. TAXOL [Suspect]
     Indication: CARCINOMA
     Dosage: PATIENT RECEIVED DOSES ON 28-AUG-2003 + 17-SEP-2003
     Route: 042
     Dates: start: 20030828, end: 20030917
  2. CARBOPLATIN [Suspect]
     Indication: CARCINOMA
     Dosage: DOSING ALSO RECEIVED ON 17-SEP-2003
     Route: 042
     Dates: start: 20030828

REACTIONS (1)
  - ADVERSE DRUG REACTION [None]
